FAERS Safety Report 9461640 (Version 2)
Quarter: 2013Q3

REPORT INFORMATION
  Report Type: Spontaneous
  Country: PL (occurrence: PL)
  Receive Date: 20130816
  Receipt Date: 20130923
  Transmission Date: 20140515
  Serious: Yes (Death, Other)
  Sender: FDA-Public Use
  Company Number: PL-JNJFOC-20130805090

PATIENT
  Sex: 0

DRUGS (1)
  1. ABCIXIMAB [Suspect]
     Indication: PERCUTANEOUS CORONARY INTERVENTION
     Route: 065

REACTIONS (5)
  - Death [Fatal]
  - Haemorrhage [Unknown]
  - Infarction [Unknown]
  - Coronary revascularisation [Unknown]
  - Vessel puncture site haematoma [Unknown]
